FAERS Safety Report 4872575-X (Version None)
Quarter: 2006Q1

REPORT INFORMATION
  Report Type: 
  Country: None (occurrence: None)
  Receive Date: 20060103
  Receipt Date: 20051222
  Transmission Date: 20060701
  Serious: Yes (Other)
  Sender: FDA-Public Use
  Company Number: FR200512003978

PATIENT
  Age: 51 Year
  Sex: Female

DRUGS (2)
  1. ZYPREXA [Suspect]
     Indication: BIPOLAR DISORDER
     Dosage: 15 MG, DAILY (1/D), SUBLINGUAL
     Route: 060
     Dates: start: 20051214, end: 20051221
  2. LOXAPINE SUCCINATE [Concomitant]

REACTIONS (2)
  - HEPATOCELLULAR DAMAGE [None]
  - NEUTROPHIL COUNT INCREASED [None]
